FAERS Safety Report 9645393 (Version 3)
Quarter: 2014Q1

REPORT INFORMATION
  Report Type: Spontaneous
  Country: GB (occurrence: GB)
  Receive Date: 20131025
  Receipt Date: 20140218
  Transmission Date: 20141002
  Serious: Yes (Hospitalization, Disabling)
  Sender: FDA-Public Use
  Company Number: GB-SA-2013SA106473

PATIENT
  Sex: Female
  Weight: 70 kg

DRUGS (15)
  1. ZALTRAP [Suspect]
     Indication: COLORECTAL CANCER METASTATIC
     Route: 042
     Dates: start: 20130702, end: 20130725
  2. IRINOTECAN [Concomitant]
     Indication: COLORECTAL CANCER METASTATIC
  3. 5-FU [Concomitant]
     Indication: COLORECTAL CANCER METASTATIC
  4. FOLINIC ACID [Concomitant]
     Indication: COLORECTAL CANCER METASTATIC
  5. GRANISETRON [Concomitant]
  6. DEXAMETHASONE [Concomitant]
  7. ATROPINE [Concomitant]
  8. CALCIUM FOLINATE [Concomitant]
  9. DOMPERIDONE [Concomitant]
  10. AMLODIPINE [Concomitant]
  11. IBUPROFEN [Concomitant]
  12. GENTAMICIN [Concomitant]
  13. TAZOCIN [Concomitant]
  14. CIPROFLOXACIN [Concomitant]
  15. CO-AMOXICLAV [Concomitant]

REACTIONS (2)
  - Vaginal discharge [Not Recovered/Not Resolved]
  - Female genital tract fistula [Not Recovered/Not Resolved]
